FAERS Safety Report 25565501 (Version 2)
Quarter: 2025Q3

REPORT INFORMATION
  Report Type: Spontaneous
  Country: EU (occurrence: EU)
  Receive Date: 20250716
  Receipt Date: 20250805
  Transmission Date: 20251021
  Serious: Yes (Other)
  Sender: AUROBINDO
  Company Number: EU-AUROBINDO-AUR-APL-2025-035729

PATIENT
  Age: 32 Year
  Sex: Male

DRUGS (7)
  1. SILODOSIN [Suspect]
     Active Substance: SILODOSIN
     Indication: Spontaneous ejaculation
     Route: 065
  2. BUPROPION [Concomitant]
     Active Substance: BUPROPION
     Indication: Obesity
     Route: 065
  3. NALTREXONE [Concomitant]
     Active Substance: NALTREXONE
     Indication: Obesity
     Route: 065
  4. RAMIPRIL [Concomitant]
     Active Substance: RAMIPRIL
     Indication: Obesity
     Route: 065
  5. AMLODIPINE [Concomitant]
     Active Substance: AMLODIPINE BESYLATE
     Indication: Obesity
     Route: 065
  6. SULODEXIDE [Concomitant]
     Active Substance: SULODEXIDE
     Indication: Obesity
     Route: 065
  7. ESZOPICLONE [Concomitant]
     Active Substance: ESZOPICLONE
     Indication: Obesity
     Route: 065

REACTIONS (1)
  - Drug ineffective [Unknown]
